FAERS Safety Report 9726846 (Version 2)
Quarter: 2014Q1

REPORT INFORMATION
  Report Type: Spontaneous
  Country: US (occurrence: US)
  Receive Date: 20131203
  Receipt Date: 20140129
  Transmission Date: 20141002
  Serious: No
  Sender: FDA-Public Use
  Company Number: US-PFIZER INC-2013341626

PATIENT
  Age: 5 Year
  Sex: Female
  Weight: 19.05 kg

DRUGS (1)
  1. JUNIOR STRENGTH ADVIL [Suspect]
     Indication: PYREXIA
     Dosage: UNK
     Route: 048
     Dates: end: 20131126

REACTIONS (4)
  - Oral discomfort [Unknown]
  - Oropharyngeal pain [Unknown]
  - Oral pain [Unknown]
  - Product quality issue [Unknown]
